FAERS Safety Report 7927957-6 (Version None)
Quarter: 2011Q4

REPORT INFORMATION
  Report Type: 
  Country: None (occurrence: None)
  Receive Date: 20111118
  Receipt Date: 20111108
  Transmission Date: 20120403
  Serious: Yes (Hospitalization, Other)
  Sender: FDA-Public Use
  Company Number: US-BAYER-2011-059475

PATIENT
  Age: 21 Year
  Sex: Female

DRUGS (4)
  1. YAZ [Suspect]
     Indication: MENSTRUATION IRREGULAR
     Dosage: UNK
     Dates: start: 20060101, end: 20090101
  2. YASMIN [Suspect]
     Indication: MENSTRUATION IRREGULAR
     Dosage: UNK
     Dates: start: 20040101, end: 20060101
  3. METFORMIN HCL [Concomitant]
     Indication: POLYCYSTIC OVARIES
     Dosage: 500 MG, TID
     Dates: start: 20020101
  4. SYNTHROID [Concomitant]
     Indication: THYROID DISORDER
     Dosage: 0.10 MG, QD
     Dates: start: 19980101

REACTIONS (12)
  - ANXIETY [None]
  - RENAL DISORDER [None]
  - ALOPECIA [None]
  - SOCIAL PHOBIA [None]
  - EATING DISORDER [None]
  - CHOLELITHIASIS [None]
  - ABDOMINAL PAIN [None]
  - DEPRESSION [None]
  - LIVER DISORDER [None]
  - MALNUTRITION [None]
  - GASTROINTESTINAL DISORDER [None]
  - PANCREATIC DISORDER [None]
